FAERS Safety Report 10067676 (Version 2)
Quarter: 2014Q2

REPORT INFORMATION
  Report Type: Report from Study
  Country: BR (occurrence: BR)
  Receive Date: 20140409
  Receipt Date: 20140409
  Transmission Date: 20141212
  Serious: Yes (Hospitalization, Other)
  Sender: FDA-Public Use
  Company Number: BR-ROCHE-776758

PATIENT
  Sex: Female
  Weight: 56 kg

DRUGS (7)
  1. RITUXIMAB [Suspect]
     Indication: RHEUMATOID ARTHRITIS
     Dosage: DOSE: 1000 MG/ML, ROUTE: ENDOVENOUS
     Route: 050
     Dates: start: 20090901, end: 20090915
  2. DEFLAZACORT [Suspect]
     Indication: PRODUCT USED FOR UNKNOWN INDICATION
     Route: 065
  3. ACTEMRA [Suspect]
     Indication: RHEUMATOID ARTHRITIS
     Dosage: MOST RECENT WAS ON 01/MAR/2014.
     Route: 042
     Dates: start: 20100412
  4. OMEPRAZOLE [Concomitant]
     Dosage: DOSE- 5.5 MG
     Route: 065
  5. CAPTOPRIL [Concomitant]
     Route: 065
  6. HYDROCHLOROTHIAZIDE [Concomitant]
     Route: 065
  7. FRONTAL [Concomitant]
     Route: 065

REACTIONS (9)
  - Glaucoma [Recovered/Resolved]
  - Cataract [Recovered/Resolved]
  - Nasopharyngitis [Not Recovered/Not Resolved]
  - Blood glucose increased [Unknown]
  - Arthropathy [Unknown]
  - Musculoskeletal disorder [Unknown]
  - Pain in extremity [Not Recovered/Not Resolved]
  - Arthralgia [Not Recovered/Not Resolved]
  - Musculoskeletal pain [Not Recovered/Not Resolved]
